FAERS Safety Report 4562442-3 (Version None)
Quarter: 2005Q1

REPORT INFORMATION
  Report Type: 
  Country: None (occurrence: None)
  Receive Date: 20050121
  Receipt Date: 20050104
  Transmission Date: 20050727
  Serious: Yes (Other)
  Sender: FDA-Public Use
  Company Number: USA050187414

PATIENT
  Age: 11 Year
  Sex: Male
  Weight: 45 kg

DRUGS (1)
  1. STRATTERA [Suspect]
     Dosage: 36 MG DAY
     Dates: start: 20040101, end: 20041101

REACTIONS (3)
  - PAIN [None]
  - PANCREATITIS [None]
  - VIRAL INFECTION [None]
